FAERS Safety Report 20758680 (Version 1)
Quarter: 2022Q2

REPORT INFORMATION
  Report Type: Spontaneous
  Country: NL (occurrence: NL)
  Receive Date: 20220427
  Receipt Date: 20220427
  Transmission Date: 20220720
  Serious: Yes (Other)
  Sender: FDA-Public Use
  Company Number: NL-STADA-245727

PATIENT
  Age: 16 Year
  Sex: Female

DRUGS (1)
  1. LORATADINE [Suspect]
     Active Substance: LORATADINE
     Indication: Seasonal allergy
     Dosage: 10 MILLIGRAM, TOTAL
     Route: 048
     Dates: start: 20220324, end: 20220324

REACTIONS (7)
  - Feeling hot [Unknown]
  - Gait inability [Unknown]
  - Facial pain [Unknown]
  - Headache [Unknown]
  - Erythema [Unknown]
  - Dizziness [Unknown]
  - Nausea [Unknown]

NARRATIVE: CASE EVENT DATE: 20220324
